FAERS Safety Report 4389750-3 (Version None)
Quarter: 2004Q2

REPORT INFORMATION
  Report Type: 
  Country: None (occurrence: None)
  Receive Date: 20040624
  Receipt Date: 20040225
  Transmission Date: 20050107
  Serious: No
  Sender: FDA-Public Use
  Company Number: 2004UW00573

PATIENT
  Age: 24 Month
  Sex: Female
  Weight: 13.1543 kg

DRUGS (5)
  1. PULMICORT RESPULES [Suspect]
     Indication: ASTHMA
     Dosage: 0.25 MG/ML HS IH
     Route: 055
     Dates: start: 20031203, end: 20031211
  2. XOPENEX [Concomitant]
  3. ATUSS DM [Concomitant]
  4. OMNICEF [Concomitant]
  5. ORAPRED [Concomitant]

REACTIONS (1)
  - RASH [None]
